FAERS Safety Report 9245334 (Version 1)
Quarter: 2013Q1

REPORT INFORMATION
  Report Type: Spontaneous
  Country: US (occurrence: None)
  Receive Date: 20121130
  Receipt Date: 20121130
  Transmission Date: 20140127
  Serious: Yes (Hospitalization)
  Sender: FDA-Public Use
  Company Number: KV201200181

PATIENT
  Age: 31 Year
  Sex: Female

DRUGS (1)
  1. MAKENA (HYDROXYPROGESTERONE CAPROATE 250 MG/ML) INJECTION, 250MG/ML [Suspect]
     Indication: PREMATURE DELIVERY
     Route: 030
     Dates: start: 2012

REACTIONS (1)
  - Premature labour [None]
